FAERS Safety Report 15279559 (Version 1)
Quarter: 2018Q3

REPORT INFORMATION
  Report Type: Spontaneous
  Country: US (occurrence: US)
  Receive Date: 20180815
  Receipt Date: 20180815
  Transmission Date: 20181010
  Serious: Yes (Other)
  Sender: FDA-Public Use
  Company Number: US-PFIZER INC-2018326571

PATIENT
  Age: 65 Year
  Sex: Male

DRUGS (2)
  1. CELEBREX [Suspect]
     Active Substance: CELECOXIB
     Dosage: UNK
  2. XARELTO [Suspect]
     Active Substance: RIVAROXABAN
     Dosage: UNK

REACTIONS (2)
  - Pain [Unknown]
  - Gastrointestinal haemorrhage [Unknown]

NARRATIVE: CASE EVENT DATE: 201711
